FAERS Safety Report 24718411 (Version 1)
Quarter: 2024Q4

REPORT INFORMATION
  Report Type: Spontaneous
  Country: US (occurrence: US)
  Receive Date: 20241210
  Receipt Date: 20241210
  Transmission Date: 20250114
  Serious: No
  Sender: PURDUE
  Company Number: US-PURDUE PHARMA-USA-2024-0313868

PATIENT
  Sex: Male
  Weight: 84.82 kg

DRUGS (1)
  1. BUPRENORPHINE [Suspect]
     Active Substance: BUPRENORPHINE
     Indication: Product used for unknown indication
     Dosage: 5 MICROGRAM, WEEKLY (STRENGTH 5MCG/H))
     Route: 062

REACTIONS (2)
  - Product use complaint [Unknown]
  - Product packaging issue [Unknown]
